FAERS Safety Report 6642090-1 (Version None)
Quarter: 2010Q1

REPORT INFORMATION
  Report Type: 
  Country: None (occurrence: None)
  Receive Date: 20100319
  Receipt Date: 20100303
  Transmission Date: 20100710
  Serious: Yes (Death)
  Sender: FDA-Public Use
  Company Number: GB-BAYER-201018524GPV

PATIENT
  Age: 22 Year
  Sex: Male

DRUGS (19)
  1. CAMPATH [Suspect]
     Indication: T-CELL DEPLETION
     Dosage: AS USED: 10 MG
     Route: 042
  2. CAMPATH [Suspect]
     Dosage: AS USED: 10 MG
     Route: 042
  3. CAMPATH [Suspect]
     Dosage: AS USED: 10 MG
     Route: 042
  4. FLUDARABINE [Suspect]
     Indication: IMMUNOSUPPRESSION
     Dosage: AS USED: 30 MG/M2
     Route: 042
  5. FLUDARABINE [Suspect]
     Dosage: AS USED: 30 MG/M2
     Route: 042
  6. FLUDARABINE [Suspect]
     Dosage: AS USED: 30 MG/M2
     Route: 042
  7. FLUDARABINE [Suspect]
     Dosage: AS USED: 30 MG/M2
     Route: 042
  8. FLUDARABINE [Suspect]
     Dosage: AS USED: 30 MG/M2
     Route: 042
  9. MELPHALAN HYDROCHLORIDE [Suspect]
     Indication: IMMUNOSUPPRESSION
     Dosage: AS USED: 70 MG/M2
     Route: 042
  10. MELPHALAN HYDROCHLORIDE [Suspect]
     Dosage: AS USED: 70 MG/M2
     Route: 042
  11. CYCLOSPORINE [Concomitant]
     Indication: PROPHYLAXIS AGAINST GRAFT VERSUS HOST DISEASE
  12. METHOTREXATE [Concomitant]
     Indication: PROPHYLAXIS AGAINST GRAFT VERSUS HOST DISEASE
  13. RECOMBINANT FACTOR VIIA [Concomitant]
     Indication: PROPHYLAXIS
  14. FAHNDI [Concomitant]
     Indication: FACTOR VIII DEFICIENCY
     Dosage: FVIII BOLUS WAS GIVEN AND THE INFUSION RATE INCREASED TO 10 IU/KG/H
  15. FAHNDI [Concomitant]
     Dosage: 25 U/KG
  16. FAHNDI [Concomitant]
     Dosage: AS USED: 1000-2000 IU
  17. FAHNDI [Concomitant]
     Dosage: ON DAY +6 WITH 60 IU/KG BOLUS, CONTINUED BY INFUSION AT 4 IU/KG/H (PLASMA LEVEL OF }100 IU/DL)
  18. FAHNDI [Concomitant]
     Dosage: 40 U/KG
  19. TRANEXAMIC ACID [Concomitant]
     Indication: SOFT TISSUE HAEMORRHAGE

REACTIONS (2)
  - CARDIAC ARREST [None]
  - KLEBSIELLA SEPSIS [None]
